FAERS Safety Report 9277271 (Version 1)
Quarter: 2013Q2

REPORT INFORMATION
  Report Type: Spontaneous
  Country: US (occurrence: US)
  Receive Date: 20130508
  Receipt Date: 20130508
  Transmission Date: 20140414
  Serious: No
  Sender: FDA-Public Use
  Company Number: US-009507513-1305USA001866

PATIENT
  Age: 18 Year
  Sex: Female
  Weight: 54.42 kg

DRUGS (1)
  1. NUVARING [Suspect]
     Indication: CONTRACEPTION
     Dosage: UNK
     Route: 067
     Dates: start: 20130430

REACTIONS (5)
  - Oedema genital [Unknown]
  - Vulvovaginal discomfort [Unknown]
  - Vulvovaginal dryness [Unknown]
  - Vulvovaginal pruritus [Unknown]
  - Pain [Unknown]
